FAERS Safety Report 12457371 (Version 2)
Quarter: 2016Q3

REPORT INFORMATION
  Report Type: Spontaneous
  Country: IT (occurrence: IT)
  Receive Date: 20160610
  Receipt Date: 20160707
  Transmission Date: 20161109
  Serious: Yes (Hospitalization)
  Sender: FDA-Public Use
  Company Number: IT-SA-2016SA105480

PATIENT
  Age: 66 Year
  Sex: Male

DRUGS (6)
  1. FLUOROURACIL TEVA [Concomitant]
     Active Substance: FLUOROURACIL
     Route: 042
     Dates: start: 20160504, end: 20160504
  2. IRINOTECAN [Suspect]
     Active Substance: IRINOTECAN
     Indication: COLON CANCER METASTATIC
     Route: 042
     Dates: start: 20160112, end: 20160112
  3. ZALTRAP [Suspect]
     Active Substance: ZIV-AFLIBERCEPT
     Indication: COLON CANCER METASTATIC
     Route: 042
     Dates: start: 20160504, end: 20160504
  4. IRINOTECAN [Suspect]
     Active Substance: IRINOTECAN
     Indication: COLON CANCER METASTATIC
     Route: 042
     Dates: start: 20160504, end: 20160504
  5. ZALTRAP [Suspect]
     Active Substance: ZIV-AFLIBERCEPT
     Indication: COLON CANCER METASTATIC
     Route: 042
     Dates: start: 20150624, end: 20150624
  6. FLUOROURACIL TEVA [Concomitant]
     Active Substance: FLUOROURACIL
     Route: 042
     Dates: start: 20150624, end: 20150624

REACTIONS (2)
  - Dehydration [Recovered/Resolved]
  - Dysphagia [Recovered/Resolved]

NARRATIVE: CASE EVENT DATE: 20160517
